FAERS Safety Report 5378005-6 (Version None)
Quarter: 2007Q2

REPORT INFORMATION
  Report Type: 
  Country: None (occurrence: None)
  Receive Date: 20070629
  Receipt Date: 20070614
  Transmission Date: 20071010
  Serious: Yes (Life-Threatening, Hospitalization)
  Sender: FDA-Public Use
  Company Number: US020296

PATIENT
  Age: 22 Year
  Sex: Male

DRUGS (3)
  1. PROVIGIL [Suspect]
     Dosage: 6000 MG ONCE ORAL
     Route: 048
     Dates: start: 20070519, end: 20070519
  2. ADDERALL 10 [Suspect]
     Dosage: 50 MG ONCE ORAL
     Route: 048
     Dates: start: 20070519, end: 20070519
  3. ZONEGRAN [Concomitant]

REACTIONS (22)
  - ACUTE RESPIRATORY DISTRESS SYNDROME [None]
  - ASPIRATION [None]
  - BLOOD PRESSURE DECREASED [None]
  - BRONCHOPLEURAL FISTULA [None]
  - CARDIAC DISORDER [None]
  - CONVULSION [None]
  - CONVULSIVE THRESHOLD LOWERED [None]
  - ENCEPHALOPATHY [None]
  - HEPATIC FAILURE [None]
  - HYPOVOLAEMIA [None]
  - LUNG DISORDER [None]
  - LUNG INFILTRATION [None]
  - MEDICAL DEVICE COMPLICATION [None]
  - METABOLIC ACIDOSIS [None]
  - MULTIPLE DRUG OVERDOSE INTENTIONAL [None]
  - PNEUMONIA BACTERIAL [None]
  - PNEUMOTHORAX [None]
  - RENAL FAILURE [None]
  - RESPIRATORY FAILURE [None]
  - RHABDOMYOLYSIS [None]
  - SINUS TACHYCARDIA [None]
  - STATUS EPILEPTICUS [None]
